FAERS Safety Report 6660263-9 (Version None)
Quarter: 2010Q1

REPORT INFORMATION
  Report Type: 
  Country: None (occurrence: None)
  Receive Date: 20100331
  Receipt Date: 20100323
  Transmission Date: 20100710
  Serious: No
  Sender: FDA-Public Use
  Company Number: 2009BI037938

PATIENT
  Sex: Female

DRUGS (1)
  1. TYSABRI [Suspect]
     Indication: MULTIPLE SCLEROSIS
     Route: 042
     Dates: start: 20070823

REACTIONS (8)
  - ARTHRALGIA [None]
  - BONE DENSITY DECREASED [None]
  - LIMB DEFORMITY [None]
  - NAIL DISCOLOURATION [None]
  - NEUROPATHY PERIPHERAL [None]
  - PAIN IN EXTREMITY [None]
  - TOOTH LOSS [None]
  - VITAMIN D DEFICIENCY [None]
